FAERS Safety Report 7319521 (Version 2)
Quarter: 2014Q3

REPORT INFORMATION
  Report Type: Spontaneous
  Country: US (occurrence: None)
  Receive Date: 20100224
  Receipt Date: 20140702
  Transmission Date: 20150326
  Serious: Yes (Other)
  Sender: FDA-Public Use
  Company Number: 2010S1000979

PATIENT
  Age: 60 Year
  Sex: Male
  Weight: 122.47 kg

DRUGS (13)
  1. AVANDARYL (GLIMEPIRIDE, ROSIGLITAZONE MALEATE) [Concomitant]
  2. PREVACID [Concomitant]
     Active Substance: LANSOPRAZOLE
  3. HYDROCHLOROTHIAZIDE (HYDROCHLOROTHIAZIDE) [Concomitant]
     Active Substance: HYDROCHLOROTHIAZIDE
  4. PRAVASTATIN [Concomitant]
     Active Substance: PRAVASTATIN\PRAVASTATIN SODIUM
  5. METFORMIN [Concomitant]
     Active Substance: METFORMIN HYDROCHLORIDE
  6. TRICOR [Concomitant]
     Active Substance: FENOFIBRATE
  7. NAPROXEN (NAPROXEN) [Concomitant]
     Active Substance: NAPROXEN
  8. PHOSPHO-SODA [Suspect]
     Active Substance: SODIUM PHOSPHATE, DIBASIC\SODIUM PHOSPHATE, MONOBASIC
     Indication: COLONOSCOPY
     Dosage: 45 ML; PO
     Route: 048
     Dates: start: 20070529, end: 20070529
  9. ALLEGRA (FEXOFENADINE HYDROCHLORIDE) [Concomitant]
  10. ATENOLOL (ATENOLOL) [Concomitant]
     Active Substance: ATENOLOL
  11. AVALIDE (HYDROCHLOROTHIAZIDE, IRBESARTAN) [Concomitant]
  12. NORVASC [Concomitant]
     Active Substance: AMLODIPINE BESYLATE
  13. LASIX [Concomitant]
     Active Substance: FUROSEMIDE

REACTIONS (18)
  - Vitamin B12 deficiency [None]
  - Diverticulum [None]
  - Hyperlipidaemia [None]
  - Anaemia [None]
  - Blood triglycerides increased [None]
  - Rectal haemorrhage [None]
  - Hypertension [None]
  - Cough [None]
  - Blood cholesterol increased [None]
  - Joint effusion [None]
  - Vitamin D deficiency [None]
  - Renal impairment [None]
  - Anal haemorrhage [None]
  - Blood glucose decreased [None]
  - Osteoarthritis [None]
  - Oropharyngeal pain [None]
  - Iron deficiency [None]
  - Pyrexia [None]
